FAERS Safety Report 20592792 (Version 2)
Quarter: 2022Q1

REPORT INFORMATION
  Report Type: Spontaneous
  Country: FR (occurrence: FR)
  Receive Date: 20220315
  Receipt Date: 20220324
  Transmission Date: 20220423
  Serious: Yes (Death, Other)
  Sender: FDA-Public Use
  Company Number: FR-ABBVIE-22K-056-4315419-00

PATIENT
  Age: 63 Year
  Sex: Female
  Weight: 63 kg

DRUGS (6)
  1. PAXLOVID [Suspect]
     Active Substance: NIRMATRELVIR\RITONAVIR
     Indication: COVID-19
     Dosage: 300 MG/ 100 MG TAKEN TWICE A DAY
     Route: 048
     Dates: start: 20220207, end: 20220212
  2. PAXLOVID [Suspect]
     Active Substance: NIRMATRELVIR\RITONAVIR
     Indication: COVID-19
     Dosage: 300 MG/ 100 MG TAKEN TWICE A DAY
     Route: 048
     Dates: start: 20220207, end: 20220212
  3. PREDNISONE [Concomitant]
     Active Substance: PREDNISONE
     Indication: Product used for unknown indication
  4. ASPIRIN [Concomitant]
     Active Substance: ASPIRIN
     Indication: Product used for unknown indication
  5. PANTOPRAZOLE [Concomitant]
     Active Substance: PANTOPRAZOLE
     Indication: Product used for unknown indication
  6. BACLOFEN [Concomitant]
     Active Substance: BACLOFEN
     Indication: Product used for unknown indication

REACTIONS (12)
  - Guillain-Barre syndrome [Fatal]
  - Neurological decompensation [Fatal]
  - Acute polyneuropathy [Fatal]
  - Paraesthesia [Unknown]
  - Mobility decreased [Unknown]
  - Muscular weakness [Unknown]
  - Dysphagia [Unknown]
  - Speech disorder [Unknown]
  - Cervical spinal cord paralysis [Unknown]
  - Salivary hypersecretion [Unknown]
  - CSF glucose increased [Unknown]
  - Off label use [Unknown]

NARRATIVE: CASE EVENT DATE: 20220201
